FAERS Safety Report 9453603 (Version 1)
Quarter: 2013Q1

REPORT INFORMATION
  Report Type: Not Available
  Country: US (occurrence: US)
  Receive Date: 20120321
  Receipt Date: 20120321
  Transmission Date: 20140127
  Serious: Yes (Other)
  Sender: FDA-Public Use
  Company Number: US-LUNDBECK-DKLU1073324

PATIENT
  Age: 5 None
  Sex: Female

DRUGS (4)
  1. SABRIL (FOR ORAL SOLUTION) [Suspect]
     Indication: EPILEPSY
     Route: 048
     Dates: start: 20110914, end: 20110917
  2. FRISIUM [Concomitant]
     Indication: CONVULSION
  3. KEPPRA [Concomitant]
     Indication: CONVULSION
  4. CLONAZEPAM [Concomitant]
     Indication: CONVULSION

REACTIONS (2)
  - Convulsion [Not Recovered/Not Resolved]
  - Fatigue [Not Recovered/Not Resolved]
